FAERS Safety Report 9372180 (Version 1)
Quarter: 2013Q2

REPORT INFORMATION
  Report Type: Report from Study
  Country: US (occurrence: US)
  Receive Date: 20130627
  Receipt Date: 20130627
  Transmission Date: 20140414
  Serious: Yes (Other)
  Sender: FDA-Public Use
  Company Number: -MYLANLABS-2012S1016523

PATIENT
  Age: 29 Year
  Sex: Female
  Weight: 125.65 kg

DRUGS (12)
  1. CLOZAPINE TABLETS [Suspect]
     Indication: SCHIZOPHRENIA
     Route: 048
     Dates: start: 20120720, end: 20120821
  2. ABILIFY [Concomitant]
     Dates: start: 20110324
  3. COGENTIN [Concomitant]
  4. CYMBALTA [Concomitant]
  5. HALDOL [Concomitant]
  6. LYRICA [Concomitant]
  7. METOPROLOL [Concomitant]
  8. METOPROLOL [Concomitant]
  9. TRAZODONE [Concomitant]
  10. ZYRTEC [Concomitant]
  11. FERROUS SULFATE [Concomitant]
  12. PRIMIDONE [Concomitant]

REACTIONS (3)
  - Drug ineffective [Recovered/Resolved]
  - Schizophrenia [Recovered/Resolved]
  - Granulocytopenia [Recovered/Resolved]
